FAERS Safety Report 17052029 (Version 1)
Quarter: 2019Q4

REPORT INFORMATION
  Report Type: Spontaneous
  Country: US (occurrence: US)
  Receive Date: 20191120
  Receipt Date: 20191120
  Transmission Date: 20200122
  Serious: No
  Sender: FDA-Public Use
  Company Number: NVSC2019US040910

PATIENT
  Sex: Female

DRUGS (5)
  1. INFLIXIMAB [Suspect]
     Active Substance: INFLIXIMAB
     Indication: BIRDSHOT CHORIORETINOPATHY
     Dosage: UNK
     Route: 062
  2. CYCLOSPORINE. [Suspect]
     Active Substance: CYCLOSPORINE
     Indication: BIRDSHOT CHORIORETINOPATHY
     Dosage: UNK
     Route: 062
  3. INFLIXIMAB [Suspect]
     Active Substance: INFLIXIMAB
     Indication: IMMUNOMODULATORY THERAPY
  4. CYCLOSPORINE. [Suspect]
     Active Substance: CYCLOSPORINE
     Indication: IMMUNOMODULATORY THERAPY
  5. MYCOPHENOLATE MOFETIL. [Suspect]
     Active Substance: MYCOPHENOLATE MOFETIL
     Indication: BIRDSHOT CHORIORETINOPATHY
     Dosage: UNK
     Route: 062

REACTIONS (3)
  - Product use in unapproved indication [Unknown]
  - Hypertension [Unknown]
  - Lysozyme increased [Unknown]
